FAERS Safety Report 21969312 (Version 1)
Quarter: 2023Q1

REPORT INFORMATION
  Report Type: Spontaneous
  Country: BR (occurrence: BR)
  Receive Date: 20230208
  Receipt Date: 20230208
  Transmission Date: 20230418
  Serious: Yes (Death)
  Sender: FDA-Public Use
  Company Number: BR-SERVIER DO BRASIL-S23001071

PATIENT
  Age: 39 Year
  Sex: Male

DRUGS (1)
  1. LONSURF [Suspect]
     Active Substance: TIPIRACIL HYDROCHLORIDE\TRIFLURIDINE
     Indication: Product used for unknown indication
     Dosage: 20MG/9.420MG MG 6 TABLETS AND 15MG/6.14 MG 2 TABLETS A DAY DURING 2 WEEKS AND WITH 2 WEEKS OF PAUSE
     Route: 048
     Dates: start: 20221208

REACTIONS (1)
  - Death [Fatal]
